FAERS Safety Report 8976422 (Version 1)
Quarter: 2012Q4

REPORT INFORMATION
  Report Type: 
  Country: GB (occurrence: GB)
  Receive Date: 20121220
  Receipt Date: 20121220
  Transmission Date: 20130627
  Serious: Yes (Other)
  Sender: FDA-Public Use
  Company Number: GB-JNJFOC-20121206961

PATIENT
  Sex: Male

DRUGS (1)
  1. XARELTO [Suspect]
     Indication: EMBOLISM VENOUS
     Route: 048

REACTIONS (3)
  - Fall [Unknown]
  - Medication error [Unknown]
  - Dizziness [Unknown]
